FAERS Safety Report 4438116-6 (Version None)
Quarter: 2004Q3

REPORT INFORMATION
  Report Type: 
  Country: None (occurrence: None)
  Receive Date: 20040831
  Receipt Date: 20040525
  Transmission Date: 20050211
  Serious: No
  Sender: FDA-Public Use
  Company Number: US-GLAXOSMITHKLINE-A0512054A

PATIENT
  Age: 53 Year
  Sex: Female

DRUGS (6)
  1. WELLBUTRIN [Suspect]
     Indication: DEPRESSION
     Dosage: 300MG PER DAY
     Route: 048
  2. PREDNISONE [Concomitant]
  3. URSO [Concomitant]
  4. SALAGEN [Concomitant]
  5. CYCLOBENZAPRINE HCL [Concomitant]
  6. FEMHRT [Concomitant]

REACTIONS (1)
  - INSOMNIA [None]
